FAERS Safety Report 15087395 (Version 1)
Quarter: 2018Q2

REPORT INFORMATION
  Report Type: Spontaneous
  Country: US (occurrence: US)
  Receive Date: 20180628
  Receipt Date: 20180628
  Transmission Date: 20180711
  Serious: Yes (Death)
  Sender: FDA-Public Use
  Company Number: US-VIFOR (INTERNATIONAL) INC.-VIT-2018-06361

PATIENT
  Age: 71 Year
  Sex: Male

DRUGS (9)
  1. METOPROLOL SUCCINATE. [Concomitant]
     Active Substance: METOPROLOL SUCCINATE
  2. ADVAIR HFA [Concomitant]
     Active Substance: FLUTICASONE PROPIONATE\SALMETEROL XINAFOATE
  3. NOVOLOG [Concomitant]
     Active Substance: INSULIN ASPART
  4. WARFARIN [Concomitant]
     Active Substance: WARFARIN
  5. VELTASSA [Suspect]
     Active Substance: PATIROMER
     Indication: HYPERKALAEMIA
     Route: 048
     Dates: start: 20180319, end: 201804
  6. ATORVASTATIN [Concomitant]
     Active Substance: ATORVASTATIN
  7. PANTOPRAZOLE [Concomitant]
     Active Substance: PANTOPRAZOLE
  8. ACETYLSALICYLIC ACID [Concomitant]
     Active Substance: ASPIRIN
  9. VITAMINS NOS [Concomitant]
     Active Substance: VITAMINS

REACTIONS (1)
  - Death [Fatal]

NARRATIVE: CASE EVENT DATE: 201804
